FAERS Safety Report 13881131 (Version 1)
Quarter: 2017Q3

REPORT INFORMATION
  Report Type: Spontaneous
  Country: GB (occurrence: GB)
  Receive Date: 20170818
  Receipt Date: 20170818
  Transmission Date: 20171127
  Serious: Yes (Hospitalization)
  Sender: FDA-Public Use
  Company Number: GB-ROCHE-1978419

PATIENT
  Sex: Male

DRUGS (1)
  1. DIAZEPAM. [Suspect]
     Active Substance: DIAZEPAM
     Indication: PRODUCT USED FOR UNKNOWN INDICATION
     Route: 064

REACTIONS (5)
  - Skin discolouration [Recovered/Resolved]
  - Heart rate increased [Recovered/Resolved]
  - Infantile apnoea [Recovered/Resolved]
  - Foetal exposure during pregnancy [Unknown]
  - Hypotonia neonatal [Recovered/Resolved]
